FAERS Safety Report 17902108 (Version 1)
Quarter: 2020Q2

REPORT INFORMATION
  Report Type: Other
  Country: DE (occurrence: DE)
  Receive Date: 20200616
  Receipt Date: 20200616
  Transmission Date: 20200714
  Serious: Yes (Hospitalization)
  Sender: FDA-Public Use
  Company Number: DE-MACLEODS PHARMACEUTICALS US LTD-MAC2020026803

PATIENT

DRUGS (2)
  1. YOMOGI [SACCHAROMYCES BOULARDII] [Suspect]
     Active Substance: SACCHAROMYCES CEREVISIAE
     Indication: PRODUCT USED FOR UNKNOWN INDICATION
     Dosage: 250 MILLIGRAM, PRN
     Route: 048
  2. PANTOPRAZOLE 20 MG TABLET [Suspect]
     Active Substance: PANTOPRAZOLE
     Indication: PRODUCT USED FOR UNKNOWN INDICATION
     Dosage: 20 MILLIGRAM, PRN
     Route: 048

REACTIONS (2)
  - Face oedema [Recovered/Resolved]
  - Sensation of foreign body [Recovered/Resolved]
